FAERS Safety Report 24015421 (Version 1)
Quarter: 2024Q2

REPORT INFORMATION
  Report Type: Spontaneous
  Country: DE (occurrence: DE)
  Receive Date: 20240626
  Receipt Date: 20240626
  Transmission Date: 20240716
  Serious: Yes (Other)
  Sender: FDA-Public Use
  Company Number: DE-Merck Healthcare KGaA-2024021969

PATIENT
  Sex: Male

DRUGS (3)
  1. ERBITUX [Suspect]
     Active Substance: CETUXIMAB
     Indication: Tonsil cancer metastatic
     Dosage: UNK UNK, 2/M
     Route: 065
     Dates: start: 202311, end: 202403
  2. CARBOPLATIN [Concomitant]
     Active Substance: CARBOPLATIN
     Indication: Tonsil cancer metastatic
     Dosage: UNK
     Dates: start: 202311, end: 202403
  3. DOCETAXEL [Concomitant]
     Active Substance: DOCETAXEL\DOCETAXEL ANHYDROUS
     Indication: Tonsil cancer metastatic
     Dosage: UNK
     Dates: start: 202311, end: 202403

REACTIONS (4)
  - Tendon rupture [Not Recovered/Not Resolved]
  - Osteoporotic fracture [Unknown]
  - Acquired phimosis [Unknown]
  - Off label use [Unknown]

NARRATIVE: CASE EVENT DATE: 20240421
